FAERS Safety Report 7360203-3 (Version None)
Quarter: 2011Q1

REPORT INFORMATION
  Report Type: 
  Country: None (occurrence: None)
  Receive Date: 20110307
  Receipt Date: 20110218
  Transmission Date: 20110831
  Serious: Yes (Hospitalization)
  Sender: FDA-Public Use
  Company Number: 014530

PATIENT
  Sex: Female
  Weight: 49 kg

DRUGS (6)
  1. METRONIDAZOLE [Concomitant]
  2. SALOFALK /00000301/ [Concomitant]
  3. PREDNISOLONE [Concomitant]
  4. HYDROCORTISONE [Concomitant]
  5. CERTOLIZUMAB PEGOL (CERTOLIZUMAB PEGOL) [Suspect]
     Indication: CROHN'S DISEASE
     Dosage: 400 MG 1X/MONTH, STUDY C87085 SUBCUTANEOUS; 400 MG, DOSES RECEIVED: 37 SUBCUTANEOUS
     Route: 058
     Dates: start: 20080714
  6. CIPROFLOXACIN [Concomitant]

REACTIONS (3)
  - CONDITION AGGRAVATED [None]
  - ANORECTAL DISORDER [None]
  - CROHN'S DISEASE [None]
